FAERS Safety Report 13873379 (Version 1)
Quarter: 2017Q3

REPORT INFORMATION
  Report Type: Report from Study
  Country: US (occurrence: US)
  Receive Date: 20170816
  Receipt Date: 20170816
  Transmission Date: 20171127
  Serious: Yes (Other)
  Sender: FDA-Public Use
  Company Number: US-TESARO, INC-US-2017TSO01322

PATIENT

DRUGS (1)
  1. ZEJULA [Suspect]
     Active Substance: NIRAPARIB
     Indication: OVARIAN CANCER
     Dosage: 300 MG, QD
     Route: 048
     Dates: start: 20170614

REACTIONS (12)
  - Tachyphrenia [Not Recovered/Not Resolved]
  - Hypertension [Recovering/Resolving]
  - Proctitis [Not Recovered/Not Resolved]
  - Retching [Not Recovered/Not Resolved]
  - Dehydration [Recovering/Resolving]
  - Rectal haemorrhage [Not Recovered/Not Resolved]
  - Abdominal pain lower [Not Recovered/Not Resolved]
  - Neoplasm progression [Not Recovered/Not Resolved]
  - Diarrhoea [Not Recovered/Not Resolved]
  - Carbohydrate antigen 125 increased [Not Recovered/Not Resolved]
  - Fatigue [Not Recovered/Not Resolved]
  - Decreased appetite [Not Recovered/Not Resolved]

NARRATIVE: CASE EVENT DATE: 201706
